FAERS Safety Report 19645589 (Version 1)
Quarter: 2021Q3

REPORT INFORMATION
  Report Type: Spontaneous
  Country: US (occurrence: US)
  Receive Date: 20210731
  Receipt Date: 20210731
  Transmission Date: 20211014
  Serious: No
  Sender: FDA-Public Use
  Company Number: None

PATIENT
  Age: 31 Year
  Sex: Female
  Weight: 65.25 kg

DRUGS (4)
  1. SINGULAIR [Suspect]
     Active Substance: MONTELUKAST SODIUM
     Indication: MAST CELL ACTIVATION SYNDROME
     Route: 048
     Dates: start: 20210425, end: 20210615
  2. MAGNESIUM GLYCINATE [Concomitant]
     Active Substance: MAGNESIUM GLYCINATE
  3. TUMERIC [Concomitant]
     Active Substance: HERBALS\TURMERIC
  4. ADDERALL [Concomitant]
     Active Substance: AMPHETAMINE ASPARTATE\AMPHETAMINE SULFATE\DEXTROAMPHETAMINE SACCHARATE\DEXTROAMPHETAMINE SULFATE

REACTIONS (7)
  - Irritability [None]
  - Suicidal behaviour [None]
  - Anxiety [None]
  - Suicidal ideation [None]
  - Abnormal dreams [None]
  - Depression [None]
  - Nightmare [None]

NARRATIVE: CASE EVENT DATE: 20200501
